FAERS Safety Report 7402814-2 (Version None)
Quarter: 2011Q2

REPORT INFORMATION
  Report Type: 
  Country: None (occurrence: None)
  Receive Date: 20110408
  Receipt Date: 20110328
  Transmission Date: 20111010
  Serious: Yes (Other)
  Sender: FDA-Public Use
  Company Number: PHHY2011DE05069

PATIENT
  Sex: Female
  Weight: 78 kg

DRUGS (8)
  1. RASILEZ [Suspect]
     Indication: HYPERTENSION
     Dosage: 1 DF, QD
     Dates: start: 20101116, end: 20101120
  2. DIOVAN [Suspect]
     Dosage: 320 MG, UNK
  3. MAGNESIUM DIASPORAL [Suspect]
     Dosage: 1 SACHET PER DAY
  4. FENTANYL [Suspect]
     Dosage: 50 UG, Q72H
  5. IRBESARTAN [Suspect]
     Indication: HYPERTENSION
     Dosage: 1 DF, QD
  6. NIBITEL [Concomitant]
  7. NEBIVOLOL HCL [Suspect]
     Indication: HYPERTENSION
     Dosage: 10 MG, QD
  8. RASILEZ [Suspect]
     Dosage: 1 DF, QD
     Dates: start: 20101123, end: 20101125

REACTIONS (1)
  - URINARY RETENTION [None]
